FAERS Safety Report 17625343 (Version 1)
Quarter: 2020Q2

REPORT INFORMATION
  Report Type: Spontaneous
  Country: ES (occurrence: ES)
  Receive Date: 20200403
  Receipt Date: 20200403
  Transmission Date: 20200713
  Serious: Yes (Hospitalization)
  Sender: FDA-Public Use
  Company Number: ES-ALLERGAN-2013485US

PATIENT
  Sex: Female

DRUGS (2)
  1. PANTOPRAZOL [Concomitant]
     Active Substance: PANTOPRAZOLE SODIUM
     Indication: GASTRIC DISORDER
     Dosage: 1 DF, QD
     Route: 048
     Dates: start: 20200324
  2. CONSTELLA [Suspect]
     Active Substance: LINACLOTIDE
     Indication: CONSTIPATION
     Dosage: ONE CAPSULE IN THE MORNING EVERY 2 DAYS
     Route: 048

REACTIONS (4)
  - Inappropriate schedule of product administration [Unknown]
  - Diarrhoea [Not Recovered/Not Resolved]
  - Sphincter of Oddi dysfunction [Unknown]
  - Malaise [Unknown]

NARRATIVE: CASE EVENT DATE: 20200324
